FAERS Safety Report 13277904 (Version 1)
Quarter: 2017Q1

REPORT INFORMATION
  Report Type: Spontaneous
  Country: DE (occurrence: DE)
  Receive Date: 20170228
  Receipt Date: 20170228
  Transmission Date: 20170428
  Serious: Yes (Disabling)
  Sender: FDA-Public Use
  Company Number: DE-JNJFOC-20170222735

PATIENT
  Age: 33 Year
  Sex: Male

DRUGS (1)
  1. XEPLION [Suspect]
     Active Substance: PALIPERIDONE PALMITATE
     Indication: PRODUCT USED FOR UNKNOWN INDICATION
     Route: 030

REACTIONS (8)
  - Balance disorder [Unknown]
  - Product use issue [Unknown]
  - Photophobia [Unknown]
  - Dizziness [Unknown]
  - Nausea [Unknown]
  - Sinus congestion [Unknown]
  - Muscle spasms [Unknown]
  - Off label use [Unknown]
